FAERS Safety Report 8496585-9 (Version None)
Quarter: 2012Q3

REPORT INFORMATION
  Report Type: 
  Country: None (occurrence: None)
  Receive Date: 20120709
  Receipt Date: 20120110
  Transmission Date: 20120928
  Serious: Yes (Disabling)
  Sender: FDA-Public Use
  Company Number: US-BRISTOL-MYERS SQUIBB COMPANY-16343139

PATIENT
  Age: 35 Year
  Sex: Female
  Weight: 38 kg

DRUGS (2)
  1. AMIKACIN SULFATE [Suspect]
     Indication: TUBERCULOSIS
     Route: 042
     Dates: end: 20110101
  2. ZYVOX [Suspect]
     Indication: TUBERCULOSIS
     Dates: start: 20110101, end: 20111217

REACTIONS (1)
  - DEAFNESS [None]
